FAERS Safety Report 5614614-4 (Version None)
Quarter: 2008Q1

REPORT INFORMATION
  Report Type: 
  Country: None (occurrence: None)
  Receive Date: 20080130
  Receipt Date: 20080116
  Transmission Date: 20080703
  Serious: Yes (Other)
  Sender: FDA-Public Use
  Company Number: CERZ-1000029

PATIENT
  Age: 63 Year
  Sex: Male
  Weight: 76.8 kg

DRUGS (1)
  1. CEREZYME [Suspect]
     Indication: GAUCHER'S DISEASE
     Dosage: 4600 U, Q2W, INTRAVENOUS
     Route: 042
     Dates: start: 20010801

REACTIONS (2)
  - BONE DENSITY DECREASED [None]
  - TOOTH LOSS [None]
